FAERS Safety Report 4853497-7 (Version None)
Quarter: 2005Q4

REPORT INFORMATION
  Report Type: 
  Country: None (occurrence: None)
  Receive Date: 20051214
  Receipt Date: 20051017
  Transmission Date: 20060501
  Serious: Yes (Other)
  Sender: FDA-Public Use
  Company Number: PHBS2005TR15280

PATIENT
  Sex: Female

DRUGS (5)
  1. ZOMETA [Suspect]
     Indication: METASTASES TO BONE
     Dosage: UNK, UNK
     Route: 042
     Dates: start: 20050401
  2. ZOLADEX [Concomitant]
     Route: 065
  3. RADIOTHERAPY [Concomitant]
  4. DOCETAXEL [Concomitant]
     Route: 065
  5. CAPECITABINE [Concomitant]
     Route: 065

REACTIONS (3)
  - HAEMOGLOBIN DECREASED [None]
  - METASTASES TO LIVER [None]
  - OSTEONECROSIS [None]
